FAERS Safety Report 4771501-1 (Version None)
Quarter: 2005Q3

REPORT INFORMATION
  Report Type: 
  Country: None (occurrence: None)
  Receive Date: 20050914
  Receipt Date: 20050914
  Transmission Date: 20060218
  Serious: Yes (Other)
  Sender: FDA-Public Use
  Company Number: None

PATIENT
  Age: 47 Year
  Sex: Male
  Weight: 114.76 kg

DRUGS (7)
  1. TOPROL-XL [Suspect]
     Indication: CORONARY ARTERY DISEASE
     Dosage: 50 MG DAILY
     Dates: start: 20050522, end: 20050822
  2. TOPROL-XL [Suspect]
     Indication: MYOCARDIAL INFARCTION
     Dosage: 50 MG DAILY
     Dates: start: 20050522, end: 20050822
  3. ASPIRIN [Concomitant]
  4. AVALIDE [Concomitant]
  5. CRALIS [Concomitant]
  6. CRESTOR [Concomitant]
  7. WELLBUTRIN SR [Concomitant]

REACTIONS (2)
  - DIARRHOEA [None]
  - FREQUENT BOWEL MOVEMENTS [None]
